FAERS Safety Report 12996095 (Version 2)
Quarter: 2019Q2

REPORT INFORMATION
  Report Type: Spontaneous
  Country: GR (occurrence: GR)
  Receive Date: 20161202
  Receipt Date: 20190411
  Transmission Date: 20190711
  Serious: Yes (Disabling, Other)
  Sender: FDA-Public Use
  Company Number: GR-ASTRAZENECA-2016SF25634

PATIENT
  Age: 71 Year
  Sex: Male
  Weight: 85 kg

DRUGS (12)
  1. LIPITOR [Suspect]
     Active Substance: ATORVASTATIN CALCIUM
     Indication: DYSLIPIDAEMIA
     Route: 048
     Dates: start: 2008, end: 20150217
  2. PHYSIOTENS [Concomitant]
     Active Substance: MOXONIDINE
     Indication: HYPERTENSION
     Route: 048
  3. CARVEDILOL. [Concomitant]
     Active Substance: CARVEDILOL
     Indication: HYPERTENSION
     Route: 048
  4. CRESTOR [Suspect]
     Active Substance: ROSUVASTATIN CALCIUM
     Indication: DYSLIPIDAEMIA
     Route: 048
     Dates: start: 2016, end: 2016
  5. GLUCOPHAGE [Concomitant]
     Active Substance: METFORMIN HYDROCHLORIDE
     Indication: DIABETES MELLITUS
     Route: 048
     Dates: start: 2008
  6. LANTUS [Concomitant]
     Active Substance: INSULIN GLARGINE
     Indication: DIABETES MELLITUS
  7. MICARDIS [Concomitant]
     Active Substance: TELMISARTAN
     Indication: HYPERTENSION
     Route: 048
  8. SALOSPIR [Concomitant]
     Active Substance: ASPIRIN
     Indication: HYPERTENSION
     Route: 048
  9. APIDRA [Concomitant]
     Active Substance: INSULIN GLULISINE
     Indication: DIABETES MELLITUS
     Dosage: 14, 15, 14 MG IN 3 DOSES IN 1 DAY
  10. LEPUR [Suspect]
     Active Substance: SIMVASTATIN
     Indication: DYSLIPIDAEMIA
     Route: 048
     Dates: start: 2015, end: 2015
  11. LIPITOR [Suspect]
     Active Substance: ATORVASTATIN CALCIUM
     Indication: DYSLIPIDAEMIA
     Route: 048
     Dates: start: 2008, end: 2008
  12. PITAVA [Suspect]
     Active Substance: PITAVASTATIN
     Indication: DYSLIPIDAEMIA
     Route: 048
     Dates: start: 2015, end: 2016

REACTIONS (3)
  - Myalgia [Recovered/Resolved]
  - Drug intolerance [Recovered/Resolved]
  - Asthenia [Recovered/Resolved]

NARRATIVE: CASE EVENT DATE: 2008
